FAERS Safety Report 4592853-1 (Version None)
Quarter: 2005Q1

REPORT INFORMATION
  Report Type: 
  Country: None (occurrence: None)
  Receive Date: 20050222
  Receipt Date: 20050209
  Transmission Date: 20050727
  Serious: Yes (Other)
  Sender: FDA-Public Use
  Company Number: HQWYE641214JAN05

PATIENT
  Age: 70 Year
  Sex: Male

DRUGS (6)
  1. CORDAREX (AMIODARONE, INJECTION) [Suspect]
     Indication: ATRIAL FLUTTER
     Dosage: 1050 MG/24 HR CONTINUOUS DRIP
     Route: 042
     Dates: start: 20040803, end: 20040804
  2. ALDACTONE [Concomitant]
  3. ASS ^STADA^ (ACETYLSALICYLIC ACID) [Concomitant]
  4. BLOPRESS (CANDESARTAN CILEXETIL) [Concomitant]
  5. DIGOXIN [Concomitant]
  6. PANTOPRAZOLE SODIUM [Concomitant]

REACTIONS (2)
  - CEREBRAL ATROPHY [None]
  - CONVULSION [None]
